FAERS Safety Report 24574522 (Version 2)
Quarter: 2024Q4

REPORT INFORMATION
  Report Type: Spontaneous
  Country: AR (occurrence: AR)
  Receive Date: 20241104
  Receipt Date: 20241107
  Transmission Date: 20250115
  Serious: Yes (Death, Hospitalization, Other)
  Sender: ROCHE
  Company Number: AR-ROCHE-10000119998

PATIENT
  Age: 65 Year
  Sex: Female

DRUGS (3)
  1. ATEZOLIZUMAB [Suspect]
     Active Substance: ATEZOLIZUMAB
     Indication: Small cell lung cancer extensive stage
     Route: 042
     Dates: start: 2024
  2. CARBOPLATIN [Suspect]
     Active Substance: CARBOPLATIN
     Indication: Small cell lung cancer extensive stage
     Route: 042
     Dates: start: 2024
  3. ETOPOSIDE [Suspect]
     Active Substance: ETOPOSIDE
     Indication: Small cell lung cancer extensive stage
     Route: 042
     Dates: start: 2024

REACTIONS (8)
  - Dyspnoea [Unknown]
  - Respiratory distress [Unknown]
  - Pneumonitis [Unknown]
  - Dysphagia [Unknown]
  - Lung infiltration [Unknown]
  - Death [Fatal]
  - Thrombocytopenia [Unknown]
  - Petechiae [Unknown]

NARRATIVE: CASE EVENT DATE: 20240701
